FAERS Safety Report 5343859-6 (Version None)
Quarter: 2007Q2

REPORT INFORMATION
  Report Type: 
  Country: None (occurrence: None)
  Receive Date: 20070531
  Receipt Date: 20070517
  Transmission Date: 20071010
  Serious: Yes (Other)
  Sender: FDA-Public Use
  Company Number: PAR_01545_2007

PATIENT
  Age: 68 Year
  Sex: Female
  Weight: 58.9676 kg

DRUGS (2)
  1. CLONAZEPAM [Suspect]
     Indication: INSOMNIA
     Dosage: 0.5 MG PRN; ORAL
     Route: 048
     Dates: start: 20070424
  2. KLONOPIN [Suspect]

REACTIONS (3)
  - CONVULSION [None]
  - FALL [None]
  - SYNCOPE [None]
